FAERS Safety Report 21020782 (Version 1)
Quarter: 2022Q2

REPORT INFORMATION
  Report Type: Report from Study
  Country: US (occurrence: US)
  Receive Date: 20220629
  Receipt Date: 20220629
  Transmission Date: 20220721
  Serious: Yes (Hospitalization, Other)
  Sender: FDA-Public Use
  Company Number: US-GILEAD-2022-0587223

PATIENT
  Sex: Female

DRUGS (4)
  1. AZTREONAM LYSINE [Suspect]
     Active Substance: AZTREONAM LYSINE
     Indication: Cystic fibrosis
     Dosage: 1 VIAL, TID EVERY OTHER MONTH, 28 DAYS EACH MONTH
     Route: 055
     Dates: start: 20150421
  2. TRIKAFTA [Concomitant]
     Active Substance: ELEXACAFTOR\IVACAFTOR\TEZACAFTOR
  3. SODIUM CHLORIDE [Concomitant]
     Active Substance: SODIUM CHLORIDE
  4. DEKAS PLUS [Concomitant]

REACTIONS (1)
  - Pneumonia [Unknown]
